FAERS Safety Report 9801918 (Version 1)
Quarter: 2014Q1

REPORT INFORMATION
  Report Type: Spontaneous
  Country: US (occurrence: US)
  Receive Date: 20140107
  Receipt Date: 20140107
  Transmission Date: 20141002
  Serious: No
  Sender: FDA-Public Use
  Company Number: US-ALLERGAN-1308346US

PATIENT
  Age: 23 Year
  Sex: Male

DRUGS (2)
  1. ACZONE [Suspect]
     Indication: ACNE
     Dosage: UNK
     Dates: start: 20130315
  2. TAZORAC CREAM 0.05% [Suspect]
     Indication: ACNE
     Dosage: UNK
     Dates: start: 20130315

REACTIONS (2)
  - Skin exfoliation [Recovering/Resolving]
  - Skin exfoliation [Recovering/Resolving]
